FAERS Safety Report 23047370 (Version 1)
Quarter: 2023Q4

REPORT INFORMATION
  Report Type: Spontaneous
  Country: US (occurrence: None)
  Receive Date: 20231010
  Receipt Date: 20231010
  Transmission Date: 20240110
  Serious: Yes (Hospitalization, Other)
  Sender: FDA-Public Use
  Company Number: US-Emmaus Medical, Inc.-EMM202309-000271

PATIENT
  Age: 11 Year
  Sex: Female

DRUGS (2)
  1. ENDARI [Suspect]
     Active Substance: GLUTAMINE
     Indication: Thalassaemia sickle cell
     Dosage: 10 G
     Route: 048
     Dates: start: 202209
  2. ENDARI [Suspect]
     Active Substance: GLUTAMINE
     Indication: Hypersplenism

REACTIONS (3)
  - Splenectomy [Unknown]
  - Hospitalisation [Unknown]
  - Product dose omission issue [Unknown]

NARRATIVE: CASE EVENT DATE: 20230101
